FAERS Safety Report 7546761-4 (Version None)
Quarter: 2011Q2

REPORT INFORMATION
  Report Type: 
  Country: None (occurrence: None)
  Receive Date: 20110614
  Receipt Date: 20110607
  Transmission Date: 20111010
  Serious: Yes (Death, Life-Threatening, Hospitalization, Disabling)
  Sender: FDA-Public Use
  Company Number: B0725831A

PATIENT
  Sex: Male
  Weight: 65.1 kg

DRUGS (10)
  1. COMBIVIR [Suspect]
     Indication: HIV INFECTION
     Dosage: 1TAB TWICE PER DAY
     Route: 048
     Dates: start: 20060509, end: 20110518
  2. ATROVENT [Concomitant]
     Route: 055
     Dates: start: 20100923, end: 20110524
  3. ALBUTEROL [Concomitant]
     Route: 055
     Dates: start: 20010101, end: 20110522
  4. NASAL SPRAY [Concomitant]
     Route: 045
     Dates: end: 20110518
  5. CENTRUM MULTIVITAMINS [Concomitant]
     Route: 048
     Dates: start: 20100501, end: 20100518
  6. HYDROMORPHONE HCL [Concomitant]
     Route: 048
     Dates: start: 20090730, end: 20110518
  7. DILANTIN [Concomitant]
     Route: 048
     Dates: start: 20070411, end: 20110518
  8. MARAVIROC [Suspect]
     Indication: HIV INFECTION
     Dosage: 60MG TWICE PER DAY
     Route: 048
     Dates: start: 20060507, end: 20110518
  9. ADVAIR DISKUS 100/50 [Concomitant]
     Route: 048
     Dates: start: 20090324, end: 20110518
  10. FENTANYL [Concomitant]
     Route: 061
     Dates: start: 20080828, end: 20110518

REACTIONS (1)
  - PULSELESS ELECTRICAL ACTIVITY [None]
